FAERS Safety Report 24789240 (Version 2)
Quarter: 2025Q1

REPORT INFORMATION
  Report Type: Spontaneous
  Country: CN (occurrence: CN)
  Receive Date: 20241230
  Receipt Date: 20250103
  Transmission Date: 20250409
  Serious: Yes (Hospitalization)
  Sender: PFIZER
  Company Number: CN-PFIZER INC-PV202400167683

PATIENT
  Age: 61 Year
  Sex: Female

DRUGS (1)
  1. CRIZOTINIB [Suspect]
     Active Substance: CRIZOTINIB
     Dosage: 250 MG, 2X/DAY
     Route: 048
     Dates: end: 20241218

REACTIONS (13)
  - Respiratory disorder [Unknown]
  - Venous thrombosis limb [Unknown]
  - Hepatic cyst [Unknown]
  - Hypoproteinaemia [Unknown]
  - Hepatic failure [Unknown]
  - Pneumonitis [Unknown]
  - Bronchostenosis [Unknown]
  - Myelosuppression [Unknown]
  - Dizziness [Unknown]
  - Decreased appetite [Unknown]
  - Lymphadenopathy [Unknown]
  - Cerebral atrophy [Unknown]
  - Neoplasm progression [Unknown]
